FAERS Safety Report 5856850-8 (Version None)
Quarter: 2008Q3

REPORT INFORMATION
  Report Type: 
  Country: None (occurrence: None)
  Receive Date: 20080825
  Receipt Date: 20080811
  Transmission Date: 20090109
  Serious: Yes (Death, Hospitalization, Other)
  Sender: FDA-Public Use
  Company Number: GB-BAUSCH-2008BL003486

PATIENT
  Age: 19 Year
  Sex: Female

DRUGS (10)
  1. PREDNISOLONE [Suspect]
     Indication: LUNG TRANSPLANT
  2. PREDNISOLONE [Suspect]
  3. AZATHIOPRINE [Suspect]
     Indication: LUNG TRANSPLANT
     Route: 048
  4. NEORAL [Suspect]
     Indication: LUNG TRANSPLANT
     Route: 048
  5. CEFTAZIDIME [Concomitant]
  6. FUNGIZONE                               /USA/ [Concomitant]
  7. GENTAMICIN [Concomitant]
     Indication: PROPHYLAXIS
     Route: 042
  8. METHYLPREDNISOLONE [Concomitant]
     Route: 042
  9. SPORANOX [Concomitant]
  10. TARGOCID [Concomitant]
     Indication: PROPHYLAXIS
     Route: 042

REACTIONS (15)
  - ACUTE PULMONARY OEDEMA [None]
  - ANOREXIA [None]
  - AORTIC VALVE INCOMPETENCE [None]
  - ASPERGILLOSIS [None]
  - CARDIAC ARREST [None]
  - CARDIAC VALVE VEGETATION [None]
  - FUNGAL ENDOCARDITIS [None]
  - HYPOTENSION [None]
  - JOINT SWELLING [None]
  - MALAISE [None]
  - NAUSEA [None]
  - NIGHT SWEATS [None]
  - PLEURAL EFFUSION [None]
  - SEPSIS [None]
  - TRANSPLANT REJECTION [None]
